FAERS Safety Report 18190226 (Version 1)
Quarter: 2020Q3

REPORT INFORMATION
  Report Type: Report from Study
  Country: US (occurrence: US)
  Receive Date: 20200824
  Receipt Date: 20200824
  Transmission Date: 20201103
  Serious: Yes (Hospitalization)
  Sender: FDA-Public Use
  Company Number: US-ACTELION-A-NJ2019-188702

PATIENT
  Age: 64 Year
  Sex: Female
  Weight: 44.9 kg

DRUGS (12)
  1. COREG [Concomitant]
     Active Substance: CARVEDILOL
     Dosage: 3.125 MG, QD
  2. VELETRI [Suspect]
     Active Substance: EPOPROSTENOL
     Dosage: 91.9 NG/KG, PER MIN
     Route: 042
  3. BIOPATCH [Suspect]
     Active Substance: CHLORHEXIDINE
     Indication: PRODUCT USED FOR UNKNOWN INDICATION
     Route: 061
  4. VELETRI [Suspect]
     Active Substance: EPOPROSTENOL
     Dosage: 81.1 NG/KG, PER MIN
     Route: 042
  5. VELETRI [Suspect]
     Active Substance: EPOPROSTENOL
     Dosage: 80 NG/KG, PER MIN
     Route: 042
  6. METOPROLOL. [Suspect]
     Active Substance: METOPROLOL
     Indication: PRODUCT USED FOR UNKNOWN INDICATION
     Route: 065
  7. AMBRISENTAN [Concomitant]
     Active Substance: AMBRISENTAN
  8. VELETRI [Suspect]
     Active Substance: EPOPROSTENOL
     Indication: PULMONARY ARTERIAL HYPERTENSION
     Dosage: 84.6 NG/KG, PER MIN
     Route: 042
  9. LETAIRIS [Concomitant]
     Active Substance: AMBRISENTAN
  10. PROMACTA [Concomitant]
     Active Substance: ELTROMBOPAG OLAMINE
     Dosage: 25 MG, QD
  11. REVATIO [Concomitant]
     Active Substance: SILDENAFIL CITRATE
  12. WARFARIN [Concomitant]
     Active Substance: WARFARIN

REACTIONS (17)
  - Hospitalisation [Unknown]
  - Nasal congestion [Unknown]
  - Seasonal allergy [Unknown]
  - Pain in extremity [Not Recovered/Not Resolved]
  - Unevaluable event [Recovering/Resolving]
  - Device leakage [Unknown]
  - Pneumonia [Recovered/Resolved]
  - Headache [Unknown]
  - Diarrhoea [Unknown]
  - Dyspnoea exertional [Unknown]
  - Erythema [Unknown]
  - Pain in jaw [Unknown]
  - Hypotension [Unknown]
  - Application site pruritus [Unknown]
  - Application site discharge [Unknown]
  - Palpitations [Not Recovered/Not Resolved]
  - Nausea [Unknown]

NARRATIVE: CASE EVENT DATE: 201901
